FAERS Safety Report 8058763 (Version 2)
Quarter: 2012Q4

REPORT INFORMATION
  Report Type: 
  Country: US (occurrence: US)
  Receive Date: 20110728
  Receipt Date: 20121002
  Transmission Date: 20130627
  Serious: Yes (Other)
  Sender: FDA-Public Use
  Company Number: US-GLAXOSMITHKLINE-A0923628A

PATIENT
  Age: 62 Year
  Sex: Male

DRUGS (1)
  1. AVANDIA [Suspect]
     Indication: DIABETES MELLITUS
     Dosage: 8MG Per day
     Route: 048
     Dates: start: 20040329, end: 20050330

REACTIONS (5)
  - Ischaemic cardiomyopathy [Not Recovered/Not Resolved]
  - Myocardial infarction [Unknown]
  - Congestive cardiomyopathy [Unknown]
  - Coronary artery bypass [Unknown]
  - Ejection fraction decreased [Unknown]
